FAERS Safety Report 7390272-6 (Version None)
Quarter: 2011Q2

REPORT INFORMATION
  Report Type: 
  Country: None (occurrence: None)
  Receive Date: 20110401
  Receipt Date: 20110331
  Transmission Date: 20111010
  Serious: No
  Sender: FDA-Public Use
  Company Number: US-TEVA-273323USA

PATIENT
  Sex: Female
  Weight: 62.198 kg

DRUGS (2)
  1. PLAN B ONE-STEP [Suspect]
     Indication: POST COITAL CONTRACEPTION
     Route: 048
     Dates: start: 20110319, end: 20110319
  2. PREVACID [Concomitant]
     Indication: DYSPEPSIA
     Dates: start: 20101201

REACTIONS (2)
  - FUNGAL INFECTION [None]
  - VAGINAL DISCHARGE [None]
